FAERS Safety Report 23453992 (Version 1)
Quarter: 2024Q1

REPORT INFORMATION
  Report Type: Spontaneous
  Country: RO (occurrence: RO)
  Receive Date: 20240130
  Receipt Date: 20240130
  Transmission Date: 20240410
  Serious: Yes (Other)
  Sender: FDA-Public Use
  Company Number: RO-BIOVITRUM-2024-RO-000980

PATIENT
  Age: 73 Year
  Sex: Female

DRUGS (4)
  1. ZYNLONTA [Suspect]
     Active Substance: LONCASTUXIMAB TESIRINE-LPYL
     Indication: Diffuse large B-cell lymphoma
     Dosage: 0,075 MG/KG ADMINISTERED IN TREATMENT CYCLES
     Route: 065
  2. ZYNLONTA [Suspect]
     Active Substance: LONCASTUXIMAB TESIRINE-LPYL
     Dosage: 0,075 MG/KG ADMINISTERED IN TREATMENT CYCLES
     Route: 065
  3. ZYNLONTA [Suspect]
     Active Substance: LONCASTUXIMAB TESIRINE-LPYL
     Dosage: 0,075 MG/KG ADMINISTERED IN TREATMENT CYCLES
     Route: 065
  4. ZYNLONTA [Suspect]
     Active Substance: LONCASTUXIMAB TESIRINE-LPYL
     Dosage: 0,075 MG/KG ADMINISTERED IN TREATMENT CYCLES. EVENT OCCURRED JUST BEFORE CYCLE 5 (DAY 21 OF CYCLE 4)
     Route: 065

REACTIONS (8)
  - Cough [Unknown]
  - Eyelid oedema [Unknown]
  - Crepitations [Unknown]
  - Leukopenia [Unknown]
  - Oedema peripheral [Unknown]
  - Anaemia [Unknown]
  - Infection [Unknown]
  - Neutropenia [Unknown]
